FAERS Safety Report 18101364 (Version 1)
Quarter: 2020Q3

REPORT INFORMATION
  Report Type: Report from Study
  Country: CA (occurrence: CA)
  Receive Date: 20200801
  Receipt Date: 20200801
  Transmission Date: 20201103
  Serious: Yes (Other)
  Sender: FDA-Public Use
  Company Number: CA-ACCORD-193429

PATIENT
  Age: 57 Year
  Sex: Male

DRUGS (12)
  1. CETIRIZINE [Concomitant]
     Active Substance: CETIRIZINE HYDROCHLORIDE
  2. PREDNISONE. [Concomitant]
     Active Substance: PREDNISONE
  3. OMALIZUMAB. [Suspect]
     Active Substance: OMALIZUMAB
     Indication: CHRONIC SPONTANEOUS URTICARIA
     Route: 058
  4. LAMISIL [Concomitant]
     Active Substance: TERBINAFINE HYDROCHLORIDE
     Route: 061
  5. MOMETASONE [Concomitant]
     Active Substance: MOMETASONE
  6. CLARITIN [Concomitant]
     Active Substance: LORATADINE
  7. PROPRANOLOL [Concomitant]
     Active Substance: PROPRANOLOL HYDROCHLORIDE
  8. SUBLINOX [Concomitant]
     Active Substance: ZOLPIDEM TARTRATE
  9. FLUOCINONIDE. [Concomitant]
     Active Substance: FLUOCINONIDE
  10. METHOTREXATE. [Suspect]
     Active Substance: METHOTREXATE
     Indication: URTICARIA
  11. LORAZEPAM. [Concomitant]
     Active Substance: LORAZEPAM
  12. METHOTREXATE. [Suspect]
     Active Substance: METHOTREXATE
     Indication: URTICARIA

REACTIONS (19)
  - Body temperature decreased [Recovered/Resolved]
  - Erythema [Recovered/Resolved]
  - Injection site reaction [Recovered/Resolved]
  - Pruritus [Recovered/Resolved]
  - Off label use [Unknown]
  - Chronic spontaneous urticaria [Recovered/Resolved]
  - Dermatitis contact [Recovered/Resolved]
  - Skin lesion [Recovered/Resolved]
  - Skin plaque [Recovered/Resolved]
  - Transient acantholytic dermatosis [Recovered/Resolved]
  - Intertrigo [Recovered/Resolved]
  - Papule [Recovered/Resolved]
  - Urticaria [Recovered/Resolved]
  - Skin exfoliation [Recovered/Resolved]
  - Tinea versicolour [Recovered/Resolved]
  - Discomfort [Recovered/Resolved]
  - Haemorrhage [Recovered/Resolved]
  - Inappropriate schedule of product administration [Unknown]
  - Skin discolouration [Recovered/Resolved]
